FAERS Safety Report 16017985 (Version 2)
Quarter: 2019Q1

REPORT INFORMATION
  Report Type: Spontaneous
  Country: US (occurrence: US)
  Receive Date: 20190228
  Receipt Date: 20190325
  Transmission Date: 20190418
  Serious: Yes (Other)
  Sender: FDA-Public Use
  Company Number: US-ELI_LILLY_AND_COMPANY-US201902009256

PATIENT
  Age: 50 Year
  Sex: Male

DRUGS (7)
  1. GEMCITABINE HYDROCHLORIDE. [Suspect]
     Active Substance: GEMCITABINE HYDROCHLORIDE
     Indication: METASTASES TO CENTRAL NERVOUS SYSTEM
     Dosage: 1000 MG/M2, DAYS 1 AND 8
     Route: 065
     Dates: start: 201403
  2. PEMETREXED. [Suspect]
     Active Substance: PEMETREXED
     Indication: TRANSITIONAL CELL CARCINOMA
  3. CISPLATIN. [Suspect]
     Active Substance: CISPLATIN
     Indication: TRANSITIONAL CELL CARCINOMA
     Dosage: 70 MG/M2, ON DAY 1 EVERY 21 DAYS
     Route: 065
     Dates: start: 201403
  4. GEMCITABINE HYDROCHLORIDE. [Suspect]
     Active Substance: GEMCITABINE HYDROCHLORIDE
     Indication: TRANSITIONAL CELL CARCINOMA
     Dosage: 15% DOSE REDUCTION UP-FRONT FOR PREVIOUS TRANSAMINITISUNK, UNKNOWN
     Route: 065
     Dates: start: 201512
  5. PEMETREXED. [Suspect]
     Active Substance: PEMETREXED
     Indication: METASTASES TO CENTRAL NERVOUS SYSTEM
     Dosage: UNK, ONE DOSE
     Route: 065
     Dates: start: 201406, end: 2014
  6. CISPLATIN. [Suspect]
     Active Substance: CISPLATIN
     Indication: METASTASES TO CENTRAL NERVOUS SYSTEM
     Dosage: UNK UNK, SINGLE
     Route: 065
     Dates: start: 201405
  7. CISPLATIN. [Suspect]
     Active Substance: CISPLATIN
     Dosage: UNK UNK, UNKNOWN
     Route: 065
     Dates: start: 201406

REACTIONS (4)
  - Off label use [Unknown]
  - Transaminases increased [Unknown]
  - Hyperbilirubinaemia [Recovered/Resolved]
  - Thrombocytopenia [Recovered/Resolved]

NARRATIVE: CASE EVENT DATE: 201403
